FAERS Safety Report 7668619-2 (Version None)
Quarter: 2011Q3

REPORT INFORMATION
  Report Type: 
  Country: None (occurrence: None)
  Receive Date: 20110808
  Receipt Date: 20110801
  Transmission Date: 20111222
  Serious: Yes (Hospitalization)
  Sender: FDA-Public Use
  Company Number: DE-SANOFI-AVENTIS-2011SA032690

PATIENT
  Age: 65 Year
  Sex: Female
  Weight: 64.5 kg

DRUGS (16)
  1. IBUPROFEN [Concomitant]
     Route: 065
  2. ZOPICLON [Concomitant]
     Route: 065
  3. METOPROLOL SUCCINATE [Concomitant]
     Route: 065
  4. TAXOTERE [Suspect]
     Indication: BREAST CANCER
     Route: 041
  5. TAXOTERE [Suspect]
     Route: 041
     Dates: start: 20110505, end: 20110505
  6. ANTI-ASTHMATICS [Concomitant]
     Route: 055
  7. SIMVASTATIN [Concomitant]
     Route: 048
  8. TAXOTERE [Suspect]
     Route: 041
     Dates: start: 20110505, end: 20110505
  9. DEXAMETHASONE [Suspect]
     Indication: PREMEDICATION
     Route: 048
     Dates: start: 20110504, end: 20110506
  10. METOPROLOL TARTRATE [Concomitant]
     Route: 048
  11. PANTOPRAZOLE [Concomitant]
     Indication: PREMEDICATION
     Route: 048
  12. NEULASTA [Suspect]
     Indication: PROPHYLAXIS
     Route: 058
     Dates: start: 20110509, end: 20110509
  13. BECLOMETHASONE W/FENOTEROL [Suspect]
     Route: 048
  14. DREISAFER [Concomitant]
     Route: 048
  15. VIDISIC /GFR/ [Concomitant]
     Route: 065
  16. METOCLOPRAMIDE [Concomitant]
     Indication: PREMEDICATION
     Route: 048
     Dates: start: 20110506, end: 20110507

REACTIONS (6)
  - OPHTHALMOPLEGIA [None]
  - TOXIC NEUROPATHY [None]
  - ATAXIA [None]
  - DYSARTHRIA [None]
  - PARAESTHESIA [None]
  - DYSGEUSIA [None]
